FAERS Safety Report 7113205-6 (Version None)
Quarter: 2010Q4

REPORT INFORMATION
  Report Type: 
  Country: None (occurrence: None)
  Receive Date: 20101119
  Receipt Date: 20091118
  Transmission Date: 20110411
  Serious: No
  Sender: FDA-Public Use
  Company Number: A0817746A

PATIENT
  Age: 29 Year
  Sex: Male

DRUGS (2)
  1. WELLBUTRIN SR [Suspect]
     Dosage: 150MG PER DAY
     Route: 048
     Dates: start: 20091015, end: 20091022
  2. DEPAKOTE [Concomitant]

REACTIONS (3)
  - NAUSEA [None]
  - TOBACCO USER [None]
  - VOMITING PROJECTILE [None]
